FAERS Safety Report 5883487-7 (Version None)
Quarter: 2008Q3

REPORT INFORMATION
  Report Type: 
  Country: None (occurrence: None)
  Receive Date: 20080910
  Receipt Date: 20080827
  Transmission Date: 20090109
  Serious: Yes (Life-Threatening, Hospitalization)
  Sender: FDA-Public Use
  Company Number: 004245

PATIENT
  Age: 65 Year
  Sex: Female

DRUGS (7)
  1. BUSULFEX [Suspect]
     Indication: STEM CELL TRANSPLANT
     Dosage: 26.8 ML, DAILY DOSE  INTRAVENOUS
     Route: 042
     Dates: start: 20070518, end: 20070519
  2. FLUDARABINE PHOSPHATE [Concomitant]
  3. ATG (ANTILYMPHOCYTE IMMUNOGLOBULIN (HORSE)) [Concomitant]
  4. PHENYTOIN [Concomitant]
  5. FILGRASTIM (FILGRASTIM) [Concomitant]
  6. METHOTREXATE [Concomitant]
  7. TACROLIMUS [Concomitant]

REACTIONS (6)
  - ACUTE MYELOID LEUKAEMIA RECURRENT [None]
  - ALANINE AMINOTRANSFERASE INCREASED [None]
  - ASPARTATE AMINOTRANSFERASE INCREASED [None]
  - HEPATIC FUNCTION ABNORMAL [None]
  - LUNG INFECTION PSEUDOMONAL [None]
  - PNEUMONIA [None]
